FAERS Safety Report 16981400 (Version 1)
Quarter: 2019Q4

REPORT INFORMATION
  Report Type: Spontaneous
  Country: US (occurrence: US)
  Receive Date: 20191031
  Receipt Date: 20191031
  Transmission Date: 20200122
  Serious: No
  Sender: FDA-Public Use
  Company Number: US-ABBVIE-19K-163-2968770-00

PATIENT
  Sex: Female

DRUGS (2)
  1. BIAXIN [Suspect]
     Active Substance: CLARITHROMYCIN
     Indication: PRODUCT USED FOR UNKNOWN INDICATION
     Route: 065
  2. CHANTIX [Suspect]
     Active Substance: VARENICLINE TARTRATE
     Indication: PRODUCT USED FOR UNKNOWN INDICATION
     Dosage: ? TAB PER ORAL DAILY X 3 DAYS. ?? TAB PER ORAL BID X 4 DAYS   ?1 TAB BID X 11 WEEKS
     Route: 048

REACTIONS (1)
  - Drug hypersensitivity [Unknown]
